FAERS Safety Report 5833506-9 (Version None)
Quarter: 2008Q3

REPORT INFORMATION
  Report Type: 
  Country: None (occurrence: None)
  Receive Date: 20080722
  Receipt Date: 20080311
  Transmission Date: 20090109
  Serious: Yes (Hospitalization)
  Sender: FDA-Public Use
  Company Number: 2008BI006894

PATIENT
  Sex: Female

DRUGS (1)
  1. AVONEX [Suspect]
     Indication: MULTIPLE SCLEROSIS
     Dosage: ; IM
     Route: 030
     Dates: start: 20031208

REACTIONS (5)
  - BURNING SENSATION [None]
  - FATIGUE [None]
  - MULTIPLE SCLEROSIS RELAPSE [None]
  - MUSCLE CONTRACTIONS INVOLUNTARY [None]
  - PAIN IN EXTREMITY [None]
